FAERS Safety Report 19184819 (Version 1)
Quarter: 2021Q2

REPORT INFORMATION
  Report Type: Spontaneous
  Country: US (occurrence: US)
  Receive Date: 20210426
  Receipt Date: 20210426
  Transmission Date: 20210717
  Serious: Yes (Hospitalization)
  Sender: FDA-Public Use
  Company Number: None

PATIENT
  Age: 41 Year
  Sex: Female
  Weight: 102.1 kg

DRUGS (10)
  1. ZANTAC [Concomitant]
     Active Substance: RANITIDINE HYDROCHLORIDE
  2. NORVASC [Concomitant]
     Active Substance: AMLODIPINE BESYLATE
  3. HYOSCYAMINE (LEVSIN/SL) [Concomitant]
  4. ZOFRAN [Concomitant]
     Active Substance: ONDANSETRON HYDROCHLORIDE
  5. REMICADE [Suspect]
     Active Substance: INFLIXIMAB
  6. SUCRALFATE (CARAFATE) [Concomitant]
  7. HYDROCORTISONE (ANUSOL?HC) [Concomitant]
  8. HYDROCHLOROTHIAZIDE (HUDRODIURIL) [Concomitant]
  9. PROZAC [Concomitant]
     Active Substance: FLUOXETINE HYDROCHLORIDE
  10. REMICADE [Concomitant]
     Active Substance: INFLIXIMAB

REACTIONS (2)
  - Hepatic steatosis [None]
  - Colitis ulcerative [None]
